FAERS Safety Report 4985530-6 (Version None)
Quarter: 2006Q2

REPORT INFORMATION
  Report Type: 
  Country: None (occurrence: None)
  Receive Date: 20060428
  Receipt Date: 20050923
  Transmission Date: 20061013
  Serious: No
  Sender: FDA-Public Use
  Company Number: US-GLAXOSMITHKLINE-A0575719A

PATIENT
  Sex: Female

DRUGS (1)
  1. FLOVENT [Suspect]
     Indication: WHEEZING
     Dosage: 2PUFF TWICE PER DAY
     Route: 055
     Dates: start: 20041101, end: 20050801

REACTIONS (3)
  - CHEST DISCOMFORT [None]
  - COUGH [None]
  - PHARMACEUTICAL PRODUCT COMPLAINT [None]
